FAERS Safety Report 9932906 (Version 1)
Quarter: 2014Q1

REPORT INFORMATION
  Report Type: Spontaneous
  Country: US (occurrence: US)
  Receive Date: 20140228
  Receipt Date: 20140228
  Transmission Date: 20141002
  Serious: No
  Sender: FDA-Public Use
  Company Number: US-GLAXOSMITHKLINE-A1038964A

PATIENT
  Sex: Male

DRUGS (6)
  1. LAMICTAL [Suspect]
     Indication: EPILEPSY
     Dosage: 25MG PER DAY
     Route: 048
     Dates: start: 201304
  2. NEXIUM [Concomitant]
  3. FINASTERIDE [Concomitant]
  4. UNKNOWN MEDICATION [Concomitant]
  5. MULTIVITAMIN [Concomitant]
  6. CALCIUM + VITAMIN D [Concomitant]
     Indication: SUPPLEMENTATION THERAPY

REACTIONS (7)
  - Fatigue [Not Recovered/Not Resolved]
  - Nausea [Unknown]
  - Insomnia [Unknown]
  - Asthenia [Unknown]
  - Insomnia [Unknown]
  - Retching [Unknown]
  - Nausea [Unknown]
